FAERS Safety Report 7209141-7 (Version None)
Quarter: 2010Q4

REPORT INFORMATION
  Report Type: 
  Country: None (occurrence: None)
  Receive Date: 20101222
  Receipt Date: 20101214
  Transmission Date: 20110411
  Serious: Yes (Hospitalization, Other)
  Sender: FDA-Public Use
  Company Number: 2010SP065178

PATIENT
  Sex: Female

DRUGS (1)
  1. IMPLANON [Suspect]
     Indication: PRODUCT USED FOR UNKNOWN INDICATION
     Dosage: 1 DF
     Dates: start: 20090101

REACTIONS (11)
  - BREAST TENDERNESS [None]
  - DRUG INEFFECTIVE [None]
  - DYSMENORRHOEA [None]
  - EMOTIONAL DISORDER [None]
  - FEELING ABNORMAL [None]
  - FEELING GUILTY [None]
  - METRORRHAGIA [None]
  - NIPPLE DISORDER [None]
  - PAIN [None]
  - SUICIDE ATTEMPT [None]
  - THROMBOSIS [None]
